FAERS Safety Report 9633279 (Version 1)
Quarter: 2013Q4

REPORT INFORMATION
  Report Type: Spontaneous
  Country: US (occurrence: None)
  Receive Date: 20131018
  Receipt Date: 20131018
  Transmission Date: 20140711
  Serious: Yes (Other)
  Sender: FDA-Public Use
  Company Number: None

PATIENT
  Age: 54 Year
  Sex: Female
  Weight: 65.77 kg

DRUGS (1)
  1. ATELVIA 35MG WARNERCHILCOTT [Suspect]
     Indication: OSTEOPOROSIS
     Route: 048
     Dates: start: 20131014, end: 20131014

REACTIONS (4)
  - Pain [None]
  - Abdominal pain [None]
  - Diarrhoea [None]
  - Gastrooesophageal reflux disease [None]
